FAERS Safety Report 6671596-4 (Version None)
Quarter: 2010Q2

REPORT INFORMATION
  Report Type: 
  Country: None (occurrence: None)
  Receive Date: 20100407
  Receipt Date: 20100326
  Transmission Date: 20101027
  Serious: Yes (Death, Other)
  Sender: FDA-Public Use
  Company Number: JP-PFIZER INC-2010040186

PATIENT

DRUGS (1)
  1. TRIAZOLAM [Suspect]

REACTIONS (2)
  - ACCIDENTAL DEATH [None]
  - DRUG LEVEL INCREASED [None]
